FAERS Safety Report 17149917 (Version 3)
Quarter: 2021Q1

REPORT INFORMATION
  Report Type: Other
  Country: CA (occurrence: CA)
  Receive Date: 20191213
  Receipt Date: 20210302
  Transmission Date: 20210419
  Serious: No
  Sender: FDA-Public Use
  Company Number: CA-ROCHE-2307803

PATIENT
  Age: 42 Year
  Sex: Female
  Weight: 73 kg

DRUGS (5)
  1. EFFEXOR [Concomitant]
     Active Substance: VENLAFAXINE HYDROCHLORIDE
  2. OCREVUS [Suspect]
     Active Substance: OCRELIZUMAB
     Route: 042
     Dates: start: 20200717
  3. TYLENOL [Concomitant]
     Active Substance: ACETAMINOPHEN
  4. RITALIN [Concomitant]
     Active Substance: METHYLPHENIDATE HYDROCHLORIDE
  5. OCREVUS [Suspect]
     Active Substance: OCRELIZUMAB
     Indication: RELAPSING-REMITTING MULTIPLE SCLEROSIS
     Dosage: 300 MG AT DAY 0 AND 14, THEN 600 MG EVERY 6 MONTH
     Route: 042
     Dates: start: 20190415

REACTIONS (12)
  - Fatigue [Not Recovered/Not Resolved]
  - Infusion related reaction [Recovering/Resolving]
  - Sluggishness [Unknown]
  - Rash macular [Unknown]
  - Weight increased [Not Recovered/Not Resolved]
  - Anger [Recovering/Resolving]
  - Herpes zoster [Recovered/Resolved]
  - Memory impairment [Recovering/Resolving]
  - Pityriasis rosea [Recovered/Resolved]
  - Infusion related reaction [Recovered/Resolved]
  - Rosacea [Recovering/Resolving]
  - Dyspnoea [Unknown]

NARRATIVE: CASE EVENT DATE: 20190415
